FAERS Safety Report 13689669 (Version 6)
Quarter: 2017Q4

REPORT INFORMATION
  Report Type: Spontaneous
  Country: JP (occurrence: JP)
  Receive Date: 20170626
  Receipt Date: 20171016
  Transmission Date: 20180320
  Serious: Yes (Other)
  Sender: FDA-Public Use
  Company Number: JP-PFIZER INC-2017272148

PATIENT
  Age: 71 Year
  Sex: Male

DRUGS (12)
  1. MUCOSOLVAN [Concomitant]
     Active Substance: AMBROXOL HYDROCHLORIDE
     Dosage: 45 MG, 1X/DAY
     Route: 048
  2. BIO-THREE [Concomitant]
     Active Substance: HERBALS
     Dosage: 1 DF, 3X/DAY
     Route: 048
  3. METHYCOBAL [Concomitant]
     Active Substance: METHYLCOBALAMIN
     Dosage: 0.5 MG, 3X/DAY
     Route: 048
  4. RIVASTACH [Interacting]
     Active Substance: RIVASTIGMINE
     Dosage: 9 MG, 1X/DAY
     Route: 062
  5. LENDORMIN [Suspect]
     Active Substance: BROTIZOLAM
     Dosage: 0.25 MG, 2X/DAY
     Route: 048
  6. ROCALTROL [Concomitant]
     Active Substance: CALCITRIOL
     Dosage: 0.5 UG, 1X/DAY
     Route: 048
  7. TAKEPRON [Concomitant]
     Active Substance: LANSOPRAZOLE
     Dosage: 30 MG, 1X/DAY
     Route: 048
  8. MICARDIS [Concomitant]
     Active Substance: TELMISARTAN
     Dosage: 10 MG, 1X/DAY
     Route: 048
  9. PLETAAL [Concomitant]
     Active Substance: CILOSTAZOL
     Dosage: 100 MG, 2X/DAY
     Route: 048
  10. LYRICA [Suspect]
     Active Substance: PREGABALIN
     Dosage: 75 MG, 1X/DAY
     Route: 048
  11. WARFARIN [Concomitant]
     Active Substance: WARFARIN
     Dosage: 1 MG, 1X/DAY
     Route: 048
  12. HALFDIGOXIN KY [Concomitant]
     Dosage: 0.0625 MG, 1X/DAY
     Route: 048

REACTIONS (9)
  - Rib fracture [Recovered/Resolved]
  - Drug interaction [Recovered/Resolved]
  - Gait disturbance [Not Recovered/Not Resolved]
  - Feeling abnormal [Unknown]
  - Fall [Recovered/Resolved]
  - Hypokinesia [Unknown]
  - Speech disorder [Not Recovered/Not Resolved]
  - Dementia [Unknown]
  - Dysstasia [Unknown]

NARRATIVE: CASE EVENT DATE: 20150817
